FAERS Safety Report 23130308 (Version 1)
Quarter: 2023Q4

REPORT INFORMATION
  Report Type: Spontaneous
  Country: NL (occurrence: NL)
  Receive Date: 20231031
  Receipt Date: 20231031
  Transmission Date: 20240109
  Serious: Yes (Other)
  Sender: FDA-Public Use
  Company Number: NL-AMCo Ltd-GSH201712-006720

PATIENT
  Sex: Female

DRUGS (1)
  1. NITROFURANTOIN [Suspect]
     Active Substance: NITROFURANTOIN
     Indication: Product used for unknown indication
     Dosage: UNK
     Route: 065

REACTIONS (4)
  - Haematemesis [Unknown]
  - Malaise [Unknown]
  - Asthenia [Unknown]
  - Heart rate increased [Unknown]
